FAERS Safety Report 18955557 (Version 1)
Quarter: 2021Q1

REPORT INFORMATION
  Report Type: Spontaneous
  Country: US (occurrence: US)
  Receive Date: 20210301
  Receipt Date: 20210301
  Transmission Date: 20210420
  Serious: No
  Sender: FDA-Public Use
  Company Number: US-GILEAD-2021-0519011

PATIENT
  Sex: Female

DRUGS (2)
  1. CORONAVIRUS VACCINE [Concomitant]
  2. ZYDELIG [Suspect]
     Active Substance: IDELALISIB
     Indication: B-CELL LYMPHOMA
     Route: 065

REACTIONS (3)
  - Immunosuppressant drug therapy [Unknown]
  - COVID-19 immunisation [Unknown]
  - SARS-CoV-2 antibody test negative [Unknown]
